FAERS Safety Report 15841274 (Version 1)
Quarter: 2019Q1

REPORT INFORMATION
  Report Type: Spontaneous
  Country: FR (occurrence: FR)
  Receive Date: 20190118
  Receipt Date: 20190118
  Transmission Date: 20190417
  Serious: Yes (Other)
  Sender: FDA-Public Use
  Company Number: FR-UCBSA-2019001255

PATIENT
  Sex: Male

DRUGS (2)
  1. EDEX [Suspect]
     Active Substance: ALPROSTADIL
     Indication: PRODUCT USED FOR UNKNOWN INDICATION
     Dosage: 10 ?G, UNK
     Dates: start: 20181213
  2. EDEX [Suspect]
     Active Substance: ALPROSTADIL
     Dosage: 5 ?G, UNK

REACTIONS (2)
  - Priapism [Recovered/Resolved]
  - Pain [Unknown]
